FAERS Safety Report 9651033 (Version 2)
Quarter: 2013Q4

REPORT INFORMATION
  Report Type: Report from Study
  Country: KR (occurrence: KR)
  Receive Date: 20131029
  Receipt Date: 20131221
  Transmission Date: 20140711
  Serious: Yes (Hospitalization)
  Sender: FDA-Public Use
  Company Number: PHHO2013KR013821

PATIENT
  Sex: 0

DRUGS (1)
  1. EXELON [Suspect]
     Indication: DEMENTIA ALZHEIMER^S TYPE
     Dosage: 18 MG, UNK
     Route: 062
     Dates: start: 20130909, end: 20131021

REACTIONS (1)
  - Gastritis [Recovered/Resolved]
